FAERS Safety Report 8588269 (Version 2)
Quarter: 2014Q1

REPORT INFORMATION
  Report Type: Spontaneous
  Country: US (occurrence: US)
  Receive Date: 20120531
  Receipt Date: 20140228
  Transmission Date: 20141002
  Serious: No
  Sender: FDA-Public Use
  Company Number: US-ASTRAZENECA-2009SE13488

PATIENT
  Age: 67 Year
  Sex: Female
  Weight: 86.2 kg

DRUGS (12)
  1. ARIMIDEX [Suspect]
     Indication: BREAST CANCER FEMALE
     Route: 048
     Dates: start: 20090901
  2. ARIMIDEX [Interacting]
     Indication: BREAST CANCER FEMALE
     Route: 048
     Dates: start: 200911
  3. PRAVASTATIN [Interacting]
     Route: 065
  4. VITAMIN E [Concomitant]
  5. VITAMIN B-12 [Concomitant]
  6. COMPLEX VITAMIN [Concomitant]
  7. MELONIN [Concomitant]
     Indication: SLEEP DISORDER
  8. SERTARLINE [Concomitant]
     Indication: DEPRESSION
  9. VITAMIN D WITH FISH OIL [Concomitant]
     Indication: VITAMIN SUPPLEMENTATION
     Dosage: 1200 MG, DAILY
     Route: 048
     Dates: start: 2009
  10. CENTRUM SILVER [Concomitant]
     Indication: VITAMIN SUPPLEMENTATION
     Dosage: DAILY
     Route: 048
     Dates: start: 2009
  11. CALTRATE [Concomitant]
     Indication: VITAMIN SUPPLEMENTATION
     Dosage: DAILY
     Route: 048
     Dates: start: 2009
  12. VITAMIN B [Concomitant]
     Indication: VITAMIN SUPPLEMENTATION
     Dosage: DAILY
     Route: 048

REACTIONS (18)
  - Drug interaction [Unknown]
  - Weight decreased [Unknown]
  - Depression [Unknown]
  - Muscle spasms [Unknown]
  - Back pain [Not Recovered/Not Resolved]
  - Oedema peripheral [Unknown]
  - Pain in extremity [Not Recovered/Not Resolved]
  - Activities of daily living impaired [Unknown]
  - Dysstasia [Unknown]
  - Gait disturbance [Unknown]
  - Feeling abnormal [Unknown]
  - Body height decreased [Unknown]
  - Bone pain [Unknown]
  - Rash vesicular [Not Recovered/Not Resolved]
  - Hyperhidrosis [Unknown]
  - Arthralgia [Unknown]
  - Therapeutic response unexpected [Unknown]
  - Drug dose omission [Unknown]
